FAERS Safety Report 4476070-1 (Version None)
Quarter: 2004Q3

REPORT INFORMATION
  Report Type: 
  Country: None (occurrence: None)
  Receive Date: 20040923
  Receipt Date: 20040621
  Transmission Date: 20050211
  Serious: No
  Sender: FDA-Public Use
  Company Number: USA040670598

PATIENT
  Age: 79 Year
  Sex: Male
  Weight: 85 kg

DRUGS (3)
  1. FORTEO [Suspect]
     Indication: THORACIC VERTEBRAL FRACTURE
     Dates: start: 20040607
  2. ATENOLOL [Concomitant]
  3. SYNTHROID [Concomitant]

REACTIONS (4)
  - DIZZINESS [None]
  - HEART RATE INCREASED [None]
  - MUSCLE CRAMP [None]
  - PALPITATIONS [None]
